FAERS Safety Report 9139565 (Version 1)
Quarter: 2013Q1

REPORT INFORMATION
  Report Type: Spontaneous
  Country: US (occurrence: US)
  Receive Date: 20130305
  Receipt Date: 20130305
  Transmission Date: 20140127
  Serious: No
  Sender: FDA-Public Use
  Company Number: US-ABBOTT-12P-163-0949568-00

PATIENT
  Sex: Female
  Weight: 39.95 kg

DRUGS (3)
  1. BIAXIN XL [Suspect]
     Indication: SINUSITIS
     Route: 048
     Dates: start: 2009, end: 2009
  2. BIAXIN XL [Suspect]
     Indication: UPPER RESPIRATORY TRACT INFECTION
  3. ARAVA [Concomitant]
     Indication: RHEUMATOID ARTHRITIS

REACTIONS (1)
  - Drug ineffective [Recovered/Resolved]
